FAERS Safety Report 23340495 (Version 1)
Quarter: 2023Q4

REPORT INFORMATION
  Report Type: Spontaneous
  Country: US (occurrence: US)
  Receive Date: 20231227
  Receipt Date: 20231227
  Transmission Date: 20240109
  Serious: No
  Sender: FDA-Public Use
  Company Number: US-COHERUS BIOSCIENCES, Inc.-2023-COH-US000598

PATIENT

DRUGS (2)
  1. YUSIMRY [Suspect]
     Active Substance: ADALIMUMAB-AQVH
     Indication: Crohn^s disease
     Dosage: 40 MG, Q2WEEKS
     Route: 058
     Dates: start: 202308
  2. YUSIMRY [Suspect]
     Active Substance: ADALIMUMAB-AQVH
     Indication: Colitis ulcerative

REACTIONS (2)
  - Accidental exposure to product [Recovered/Resolved]
  - Product complaint [Recovered/Resolved]

NARRATIVE: CASE EVENT DATE: 20231122
